FAERS Safety Report 6649296-6 (Version None)
Quarter: 2010Q1

REPORT INFORMATION
  Report Type: 
  Country: None (occurrence: None)
  Receive Date: 20100324
  Receipt Date: 20100317
  Transmission Date: 20100710
  Serious: Yes (Hospitalization)
  Sender: FDA-Public Use
  Company Number: PHHO2010US04457

PATIENT
  Sex: Male
  Weight: 91.61 kg

DRUGS (6)
  1. AFINITOR [Suspect]
     Indication: RENAL CELL CARCINOMA
     Dosage: 135 MG / WEEKLY
     Route: 048
     Dates: start: 20091125, end: 20091223
  2. SORAFENIB [Suspect]
     Indication: RENAL CELL CARCINOMA
     Dosage: 200 MG, BID
     Route: 048
     Dates: start: 20091125
  3. CARVEDILOL [Concomitant]
  4. NOVOLOG [Concomitant]
  5. AMLODIPINE [Concomitant]
  6. ALLEGRA [Concomitant]

REACTIONS (6)
  - ABDOMINAL PAIN [None]
  - DIARRHOEA [None]
  - DYSPNOEA EXERTIONAL [None]
  - GASTROENTERITIS VIRAL [None]
  - OEDEMA [None]
  - SINUS DISORDER [None]
